FAERS Safety Report 7714680-6 (Version None)
Quarter: 2011Q3

REPORT INFORMATION
  Report Type: 
  Country: None (occurrence: None)
  Receive Date: 20110829
  Receipt Date: 20110823
  Transmission Date: 20111222
  Serious: Yes (Death, Life-Threatening, Other)
  Sender: FDA-Public Use
  Company Number: AT-JNJFOC-20110811241

PATIENT
  Age: 83 Year
  Sex: Male

DRUGS (11)
  1. REOPRO [Suspect]
     Dosage: 7, 5 ML
     Route: 042
  2. ATROPINE [Concomitant]
     Indication: ATRIOVENTRICULAR BLOCK COMPLETE
     Route: 065
  3. REOPRO [Suspect]
     Indication: ACUTE MYOCARDIAL INFARCTION
     Dosage: 4,5 MG/50 WITH A RATE OF 3.0ML/ HOUR
     Route: 042
  4. HEPARIN [Suspect]
     Indication: ACUTE MYOCARDIAL INFARCTION
     Dosage: 4000 IE
     Route: 042
  5. HEPARIN [Suspect]
     Dosage: 3000
     Route: 042
  6. AMIODARONE HYDROCHLORIDE [Concomitant]
     Route: 065
  7. ATENOLOL [Concomitant]
     Route: 065
  8. SIMDAX [Concomitant]
     Route: 065
  9. ASPIRIN [Suspect]
     Indication: ACUTE MYOCARDIAL INFARCTION
     Route: 042
  10. CLOPIDOGREL [Suspect]
     Indication: ATRIOVENTRICULAR BLOCK COMPLETE
     Route: 065
  11. MORPHINE [Concomitant]
     Indication: ACUTE MYOCARDIAL INFARCTION
     Route: 065

REACTIONS (3)
  - INFECTION [None]
  - PULMONARY HAEMORRHAGE [None]
  - PULMONARY OEDEMA [None]
